FAERS Safety Report 21378950 (Version 4)
Quarter: 2022Q4

REPORT INFORMATION
  Report Type: Report from Study
  Country: DE (occurrence: DE)
  Receive Date: 20220927
  Receipt Date: 20221117
  Transmission Date: 20230112
  Serious: Yes (Hospitalization, Other)
  Sender: FDA-Public Use
  Company Number: DE-INSMED, INC.-2022-01118-DE

PATIENT
  Age: 55 Year
  Sex: Female

DRUGS (3)
  1. ARIKAYCE [Suspect]
     Active Substance: AMIKACIN
     Indication: Mycobacterium avium complex infection
     Dosage: 590 MILLIGRAM, QD
     Route: 055
     Dates: start: 20220420, end: 20220421
  2. ARIKAYCE [Suspect]
     Active Substance: AMIKACIN
     Dosage: 590 MILLIGRAM
     Route: 055
     Dates: start: 20220501, end: 20220503
  3. ARIKAYCE [Suspect]
     Active Substance: AMIKACIN
     Dosage: 590 MILLIGRAM, UNK
     Route: 055
     Dates: start: 202207

REACTIONS (16)
  - Emphysema [Not Recovered/Not Resolved]
  - Lung disorder [Unknown]
  - Cardiovascular disorder [Recovered/Resolved]
  - Feeling hot [Recovered/Resolved]
  - Nasopharyngitis [Recovered/Resolved]
  - Breath sounds abnormal [Not Recovered/Not Resolved]
  - Dyspnoea exertional [Not Recovered/Not Resolved]
  - Dysgeusia [Not Recovered/Not Resolved]
  - General physical health deterioration [Recovering/Resolving]
  - Haemoptysis [Recovered/Resolved]
  - Dyspnoea [Recovering/Resolving]
  - Product dose omission issue [Unknown]
  - Accidental underdose [Unknown]
  - Treatment noncompliance [Unknown]
  - Intentional dose omission [Unknown]
  - Therapy interrupted [Unknown]

NARRATIVE: CASE EVENT DATE: 20220101
